FAERS Safety Report 8538229 (Version 5)
Quarter: 2012Q4

REPORT INFORMATION
  Report Type: Report from Study
  Country: US (occurrence: US)
  Receive Date: 20120501
  Receipt Date: 20121114
  Transmission Date: 20130627
  Serious: Yes (Hospitalization)
  Sender: FDA-Public Use
  Company Number: US-JNJFOC-20120410953

PATIENT
  Age: 12 Year
  Sex: Male
  Weight: 57.06 kg

DRUGS (6)
  1. REMICADE [Suspect]
     Indication: CROHN^S DISEASE
     Route: 042
     Dates: start: 20091202
  2. 5-ASA [Concomitant]
  3. PREVACID [Concomitant]
  4. CALTRATE [Concomitant]
  5. VITAMIN D [Concomitant]
  6. MIRALAX [Concomitant]

REACTIONS (1)
  - Crohn^s disease [Recovered/Resolved]
